FAERS Safety Report 5910444-4 (Version None)
Quarter: 2008Q4

REPORT INFORMATION
  Report Type: 
  Country: None (occurrence: None)
  Receive Date: 20081007
  Receipt Date: 20081001
  Transmission Date: 20090506
  Serious: Yes (Other)
  Sender: FDA-Public Use
  Company Number: US-ASTRAZENECA-2008UW21195

PATIENT
  Age: 68 Year
  Sex: Female

DRUGS (9)
  1. ARIMIDEX [Suspect]
     Dates: start: 20070101
  2. SPIRIVA [Concomitant]
  3. XOPENEX [Concomitant]
  4. ADVAIR DISKUS 100/50 [Concomitant]
  5. ALBUTEROL [Concomitant]
     Route: 055
  6. PRAVASTATIN [Concomitant]
  7. DETROL [Concomitant]
  8. LISINOPRIL [Concomitant]
  9. METOPROLOL TARTRATE [Concomitant]

REACTIONS (3)
  - CHRONIC OBSTRUCTIVE PULMONARY DISEASE [None]
  - DYSPHONIA [None]
  - PNEUMONIA [None]
